FAERS Safety Report 26019576 (Version 2)
Quarter: 2025Q4

REPORT INFORMATION
  Report Type: Spontaneous
  Country: EU (occurrence: EU)
  Receive Date: 20251110
  Receipt Date: 20251227
  Transmission Date: 20260117
  Serious: Yes (Hospitalization)
  Sender: ACCORD
  Company Number: None

PATIENT
  Age: 78 Year
  Sex: Female

DRUGS (9)
  1. PRAVASTATIN SODIUM [Suspect]
     Active Substance: PRAVASTATIN SODIUM
     Indication: Angioplasty
     Dates: start: 20250515, end: 20250923
  2. KARDEGIC [Concomitant]
     Active Substance: ASPIRIN DL-LYSINE
  3. AMIODARONE [Concomitant]
     Active Substance: AMIODARONE
  4. LOXEN [Concomitant]
  5. IMOVANE [Concomitant]
     Active Substance: ZOPICLONE
  6. ELIQUIS [Concomitant]
     Active Substance: APIXABAN
  7. METFORMIN HYDROCHLORIDE [Concomitant]
     Active Substance: METFORMIN HYDROCHLORIDE
  8. MIRTAZAPINE [Concomitant]
     Active Substance: MIRTAZAPINE
  9. OXAZEPAMUM [Concomitant]

REACTIONS (3)
  - Hepatic cytolysis [Recovering/Resolving]
  - Prothrombin time shortened [Recovering/Resolving]
  - Coagulation factor V level decreased [Recovering/Resolving]

NARRATIVE: CASE EVENT DATE: 20250923
